FAERS Safety Report 5109496-3 (Version None)
Quarter: 2006Q3

REPORT INFORMATION
  Report Type: 
  Country: None (occurrence: None)
  Receive Date: 20060731
  Receipt Date: 20060406
  Transmission Date: 20061208
  Serious: No
  Sender: FDA-Public Use
  Company Number: 2006PV011590

PATIENT
  Age: 57 Year
  Sex: Male
  Weight: 110.2241 kg

DRUGS (7)
  1. BYETTA [Suspect]
     Indication: DRUG USE FOR UNKNOWN INDICATION
     Dosage: 5 MCG;BID;SC
     Route: 058
     Dates: start: 20060404
  2. PROTONIX [Concomitant]
  3. ALTACE [Concomitant]
  4. ASCORBIC ACID [Concomitant]
  5. FISH OIL [Concomitant]
  6. ALLEGRA [Concomitant]
  7. ZYRTEC [Concomitant]

REACTIONS (4)
  - ERYTHEMA [None]
  - FLUSHING [None]
  - RASH [None]
  - THERAPEUTIC RESPONSE UNEXPECTED [None]
